FAERS Safety Report 7830666-5 (Version None)
Quarter: 2011Q4

REPORT INFORMATION
  Report Type: 
  Country: None (occurrence: None)
  Receive Date: 20111021
  Receipt Date: 20111017
  Transmission Date: 20120403
  Serious: Yes (Death)
  Sender: FDA-Public Use
  Company Number: GB-PFIZER INC-2003184550GB

PATIENT
  Age: 60 Year
  Sex: Male
  Weight: 70.9 kg

DRUGS (4)
  1. THYROXIN [Concomitant]
     Dosage: 175 UG, DAILY
     Dates: start: 20000615
  2. HYDROCORTISONE [Concomitant]
     Dosage: 30 MG, DAILY
     Dates: start: 20030912
  3. SOMATROPIN [Suspect]
     Indication: HYPOPITUITARISM
     Dosage: 0.6 MG, 1X/DAY
     Dates: start: 20011122, end: 20030811
  4. TESTOSTERONE PHENYL PROPIONATE INJ [Concomitant]
     Dosage: 250 MG, UNK
     Dates: start: 19980615

REACTIONS (1)
  - PANCREATIC CARCINOMA [None]
